FAERS Safety Report 25442688 (Version 2)
Quarter: 2025Q3

REPORT INFORMATION
  Report Type: Spontaneous
  Country: US (occurrence: US)
  Receive Date: 20250617
  Receipt Date: 20250728
  Transmission Date: 20251021
  Serious: Yes (Other)
  Sender: BRISTOL-MYERS SQUIBB COMPANY
  Company Number: US-BRISTOL-MYERS SQUIBB COMPANY-2025-082243

PATIENT
  Age: 65 Year
  Sex: Male

DRUGS (1)
  1. LENALIDOMIDE [Suspect]
     Active Substance: LENALIDOMIDE
     Indication: Plasma cell myeloma
     Dosage: TAKE 1 CAPSULE BY MOUTH DAILY X21 DAYS EVERY 28 DAYS W/WATER AT THE SAME TIME DAILY DO NOT BREAK CHE
     Route: 048
     Dates: start: 20250529

REACTIONS (3)
  - Fatigue [Recovering/Resolving]
  - Spinal fracture [Unknown]
  - COVID-19 [Recovered/Resolved]
